FAERS Safety Report 13033517 (Version 2)
Quarter: 2017Q1

REPORT INFORMATION
  Report Type: Spontaneous
  Country: US (occurrence: US)
  Receive Date: 20161216
  Receipt Date: 20170111
  Transmission Date: 20170428
  Serious: No
  Sender: FDA-Public Use
  Company Number: US-BIOGEN-2016BI00330352

PATIENT
  Sex: Female

DRUGS (5)
  1. AVONEX [Suspect]
     Active Substance: INTERFERON BETA-1A
     Route: 065
     Dates: start: 20040101
  2. AVONEX [Suspect]
     Active Substance: INTERFERON BETA-1A
     Route: 065
     Dates: start: 20120325, end: 20120920
  3. AVONEX [Suspect]
     Active Substance: INTERFERON BETA-1A
     Route: 065
     Dates: start: 20081101
  4. AVONEX [Suspect]
     Active Substance: INTERFERON BETA-1A
     Route: 065
     Dates: start: 20120401
  5. AVONEX [Suspect]
     Active Substance: INTERFERON BETA-1A
     Indication: MULTIPLE SCLEROSIS
     Route: 065
     Dates: start: 20010531, end: 20041001

REACTIONS (8)
  - Cough [Unknown]
  - Scar [Unknown]
  - Injection site reaction [Unknown]
  - Nuclear magnetic resonance imaging abnormal [Unknown]
  - Hypertension [Unknown]
  - Carpal tunnel syndrome [Not Recovered/Not Resolved]
  - Abdominal pain upper [Recovered/Resolved]
  - Scar pain [Unknown]
